FAERS Safety Report 14732300 (Version 1)
Quarter: 2018Q2

REPORT INFORMATION
  Report Type: Spontaneous
  Country: US (occurrence: US)
  Receive Date: 20180409
  Receipt Date: 20180409
  Transmission Date: 20180711
  Serious: No
  Sender: FDA-Public Use
  Company Number: US-TEVA-790818ACC

PATIENT
  Age: 78 Year
  Sex: Male

DRUGS (1)
  1. IBANDRONATE SODIUM. [Suspect]
     Active Substance: IBANDRONATE SODIUM
     Dates: start: 201706

REACTIONS (1)
  - Constipation [Not Recovered/Not Resolved]

NARRATIVE: CASE EVENT DATE: 2017
